FAERS Safety Report 11259532 (Version 1)
Quarter: 2015Q3

REPORT INFORMATION
  Report Type: Spontaneous
  Country: ES (occurrence: ES)
  Receive Date: 20150710
  Receipt Date: 20150710
  Transmission Date: 20151125
  Serious: Yes (Other)
  Sender: FDA-Public Use
  Company Number: ES-GE HEALTHCARE MEDICAL DIAGNOSTICS-OMPQ-PR-1506S-1017

PATIENT
  Age: 13 Year
  Sex: Female
  Weight: 60 kg

DRUGS (2)
  1. OMNIPAQUE [Suspect]
     Active Substance: IOHEXOL
     Indication: DIAGNOSTIC PROCEDURE
  2. OMNIPAQUE [Suspect]
     Active Substance: IOHEXOL
     Indication: CROHN^S DISEASE
     Route: 042
     Dates: start: 20150622, end: 20150622

REACTIONS (2)
  - Erythema [Recovered/Resolved]
  - Dyspnoea [Recovered/Resolved]

NARRATIVE: CASE EVENT DATE: 201506
